FAERS Safety Report 11122889 (Version 1)
Quarter: 2015Q2

REPORT INFORMATION
  Report Type: Spontaneous
  Country: FR (occurrence: FR)
  Receive Date: 20150519
  Receipt Date: 20150519
  Transmission Date: 20150821
  Serious: Yes (Hospitalization, Other)
  Sender: FDA-Public Use
  Company Number: PHHY2015FR056764

PATIENT
  Age: 73 Year
  Sex: Female

DRUGS (2)
  1. BETAMETHASONE [Suspect]
     Active Substance: BETAMETHASONE
     Dosage: 6 MG
     Route: 065
  2. METHOTREXATE [Suspect]
     Active Substance: METHOTREXATE
     Indication: TEMPORAL ARTERITIS
     Dosage: 15 MG
     Route: 065

REACTIONS (7)
  - Lung disorder [Recovered/Resolved]
  - Neck pain [Recovered/Resolved]
  - Hyponatraemia [Recovered/Resolved]
  - Headache [Recovered/Resolved]
  - Hypoalbuminaemia [Recovered/Resolved]
  - Decreased appetite [Recovered/Resolved]
  - Alveolitis [Recovered/Resolved]
